FAERS Safety Report 7613861 (Version 4)
Quarter: 2013Q4

REPORT INFORMATION
  Report Type: Spontaneous
  Country: US (occurrence: US)
  Receive Date: 20101001
  Receipt Date: 20131227
  Transmission Date: 20140711
  Serious: Yes (Other)
  Sender: FDA-Public Use
  Company Number: US-BAYER-201035096NA

PATIENT
  Age: 19 Year
  Sex: Female
  Weight: 90.7 kg

DRUGS (5)
  1. YAZ [Suspect]
     Dosage: UNK
  2. YASMIN [Suspect]
     Indication: ACNE
     Dosage: UNK
     Dates: start: 200705, end: 200808
  3. NORDETTE [Concomitant]
     Dosage: UNK
     Dates: start: 20080926, end: 20090209
  4. DEPO-PROVERA [Concomitant]
     Dosage: UNK
     Dates: start: 20090625
  5. CHERATUSSIN AC [Concomitant]
     Dosage: UNK

REACTIONS (6)
  - Cholecystitis chronic [Recovered/Resolved]
  - Abdominal pain [Recovered/Resolved]
  - Abdominal pain upper [None]
  - Gallbladder disorder [None]
  - Procedural pain [Recovered/Resolved]
  - Dyspepsia [Not Recovered/Not Resolved]
